FAERS Safety Report 17764920 (Version 1)
Quarter: 2020Q2

REPORT INFORMATION
  Report Type: Spontaneous
  Country: US (occurrence: US)
  Receive Date: 20200511
  Receipt Date: 20200511
  Transmission Date: 20200714
  Serious: Yes (Other)
  Sender: FDA-Public Use
  Company Number: US-SA-2020SA117546

PATIENT
  Age: 9 Month
  Sex: Male
  Weight: 7 kg

DRUGS (4)
  1. CLOPIDOGREL BISULFATE. [Suspect]
     Active Substance: CLOPIDOGREL BISULFATE
     Indication: ANTICOAGULANT THERAPY
  2. DIPYRIDAMOLE. [Suspect]
     Active Substance: DIPYRIDAMOLE
     Indication: ANTICOAGULANT THERAPY
  3. ACETYLSALICYLIC ACID [Suspect]
     Active Substance: ASPIRIN
     Indication: ANTICOAGULANT THERAPY
     Dosage: UNK
  4. BIVALIRUDIN. [Concomitant]
     Active Substance: BIVALIRUDIN
     Indication: ANTICOAGULANT THERAPY

REACTIONS (3)
  - Embolic stroke [Recovered/Resolved]
  - Off label use [Unknown]
  - Therapeutic response decreased [Unknown]
